FAERS Safety Report 21558936 (Version 1)
Quarter: 2022Q4

REPORT INFORMATION
  Report Type: Spontaneous
  Country: US (occurrence: US)
  Receive Date: 20221107
  Receipt Date: 20221107
  Transmission Date: 20230113
  Serious: No
  Sender: FDA-Public Use
  Company Number: US-ORGANON-O2210USA001705

PATIENT

DRUGS (1)
  1. NEXPLANON [Suspect]
     Active Substance: ETONOGESTREL
     Dosage: 1 IMPLANT IN THE BACKSIDE OF LEFT ARM
     Route: 059
     Dates: start: 202207

REACTIONS (2)
  - Device placement issue [Not Recovered/Not Resolved]
  - No adverse event [Unknown]

NARRATIVE: CASE EVENT DATE: 20220101
